FAERS Safety Report 6242447-7 (Version None)
Quarter: 2009Q2

REPORT INFORMATION
  Report Type: 
  Country: None (occurrence: None)
  Receive Date: 20090622
  Receipt Date: 20090622
  Transmission Date: 20091009
  Serious: No
  Sender: FDA-Public Use
  Company Number: None

PATIENT
  Age: 48 Year
  Sex: Female
  Weight: 72.5755 kg

DRUGS (3)
  1. ZICAM NASAL SWABS [Suspect]
     Indication: INFLUENZA
     Dosage: 1 SWAB 1 X DAILY-NASAL
     Route: 045
     Dates: start: 20080901, end: 20081201
  2. ZICAM NASAL SWABS [Suspect]
     Indication: NASOPHARYNGITIS
     Dosage: 1 SWAB 1 X DAILY-NASAL
     Route: 045
     Dates: start: 20080901, end: 20081201
  3. EMERGEN-C [Concomitant]

REACTIONS (1)
  - ANOSMIA [None]
